FAERS Safety Report 9772498 (Version 1)
Quarter: 2013Q4

REPORT INFORMATION
  Report Type: Spontaneous
  Country: US (occurrence: None)
  Receive Date: 20131218
  Receipt Date: 20131218
  Transmission Date: 20140711
  Serious: Yes (Other)
  Sender: FDA-Public Use
  Company Number: 2013CT000072

PATIENT
  Age: 42 Year
  Sex: Male
  Weight: 80.74 kg

DRUGS (4)
  1. KORLYM [Suspect]
     Indication: CUSHING^S SYNDROME
     Route: 048
     Dates: start: 201306
  2. ANTARA [Concomitant]
  3. SYNTHROID [Concomitant]
  4. BENICAR [Concomitant]

REACTIONS (3)
  - Pain [None]
  - Muscle spasms [None]
  - Musculoskeletal stiffness [None]
